FAERS Safety Report 5848389-0 (Version None)
Quarter: 2008Q3

REPORT INFORMATION
  Report Type: 
  Country: None (occurrence: None)
  Receive Date: 20080818
  Receipt Date: 20080630
  Transmission Date: 20090109
  Serious: No
  Sender: FDA-Public Use
  Company Number: US-BAYER-200827006NA

PATIENT

DRUGS (1)
  1. BETASERON [Suspect]

REACTIONS (1)
  - BLOOD BILIRUBIN INCREASED [None]
